FAERS Safety Report 16952434 (Version 1)
Quarter: 2019Q4

REPORT INFORMATION
  Report Type: Spontaneous
  Country: US (occurrence: US)
  Receive Date: 20191022
  Receipt Date: 20191022
  Transmission Date: 20200122
  Serious: Yes (Other)
  Sender: FDA-Public Use
  Company Number: None

PATIENT
  Age: 71 Year
  Sex: Female
  Weight: 65 kg

DRUGS (2)
  1. PRIVIGEN [Suspect]
     Active Substance: HUMAN IMMUNOGLOBULIN G
     Indication: MYASTHENIA GRAVIS
     Dosage: 5 G INTRAVENOUS ONCE A MONTH X 5 D
     Route: 042
     Dates: start: 20191017, end: 20191017
  2. PRIVIGEN [Suspect]
     Active Substance: HUMAN IMMUNOGLOBULIN G
     Indication: MYASTHENIA GRAVIS
     Dosage: 20 G INTRAVENOUS ONCE A MONTHX 5D?
     Route: 042
     Dates: start: 20191017, end: 20191017

REACTIONS (2)
  - Infusion related reaction [None]
  - Blood pressure increased [None]

NARRATIVE: CASE EVENT DATE: 20191017
